FAERS Safety Report 15722506 (Version 1)
Quarter: 2018Q4

REPORT INFORMATION
  Report Type: Spontaneous
  Country: US (occurrence: US)
  Receive Date: 20181213
  Receipt Date: 20181213
  Transmission Date: 20190205
  Serious: Yes (Other)
  Sender: FDA-Public Use
  Company Number: None

PATIENT
  Age: 30 Year
  Sex: Female
  Weight: 90 kg

DRUGS (7)
  1. TRAZODONE 150MG [Concomitant]
     Dates: start: 20180817, end: 20181213
  2. BUPROPION XL 150 + 300MG [Concomitant]
     Dates: start: 20180817, end: 20181213
  3. GABAPENTIN 300MG [Concomitant]
     Active Substance: GABAPENTIN
     Dates: start: 20180817, end: 20181213
  4. LAMOTRIGINE. [Suspect]
     Active Substance: LAMOTRIGINE
     Indication: SEIZURE
     Route: 048
     Dates: start: 20180928, end: 20181213
  5. SUMATRIPTAN 50MG [Concomitant]
     Active Substance: SUMATRIPTAN
     Dates: start: 20181206, end: 20181213
  6. ERRIN 0.35MG [Concomitant]
     Dates: start: 20180905, end: 20181213
  7. VYVANSE [Concomitant]
     Active Substance: LISDEXAMFETAMINE DIMESYLATE
     Dates: start: 20180825, end: 20181213

REACTIONS (1)
  - Drug screen false positive [None]

NARRATIVE: CASE EVENT DATE: 20181213
